FAERS Safety Report 7744796-X (Version None)
Quarter: 2011Q3

REPORT INFORMATION
  Report Type: 
  Country: None (occurrence: None)
  Receive Date: 20110912
  Receipt Date: 20110912
  Transmission Date: 20111222
  Serious: No
  Sender: FDA-Public Use
  Company Number: None

PATIENT
  Age: 50 Year
  Sex: Female
  Weight: 56.699 kg

DRUGS (1)
  1. CITALOPRAM HYDROBROMIDE [Suspect]
     Dosage: 5 OR 10 MG.  THE SMALLEST DOSE
     Route: 048
     Dates: start: 20071102, end: 20071107

REACTIONS (5)
  - SOMNOLENCE [None]
  - FEELING ABNORMAL [None]
  - DYSKINESIA [None]
  - HYPOTONIA [None]
  - PARALYSIS [None]
